FAERS Safety Report 24984162 (Version 1)
Quarter: 2025Q1

REPORT INFORMATION
  Report Type: Spontaneous
  Country: US (occurrence: US)
  Receive Date: 20250219
  Receipt Date: 20250219
  Transmission Date: 20250408
  Serious: No
  Sender: NOVARTIS
  Company Number: US-002147023-NVSC2025US022180

PATIENT
  Age: 54 Year
  Sex: Male

DRUGS (4)
  1. PAZOPANIB [Suspect]
     Active Substance: PAZOPANIB
     Indication: Renal cancer
     Dosage: 400 MG, QD (200 MG (2 TABLETS DAILY))
     Route: 048
     Dates: start: 20240104
  2. PAZOPANIB [Suspect]
     Active Substance: PAZOPANIB
     Dosage: 800 MG, QD
     Route: 048
     Dates: start: 20241204
  3. CABOMETYX [Suspect]
     Active Substance: CABOZANTINIB S-MALATE
     Indication: Renal cancer
     Dosage: 40 MG, QD
     Route: 048
  4. FOTIVDA [Suspect]
     Active Substance: TIVOZANIB HYDROCHLORIDE
     Indication: Renal cancer
     Route: 065
     Dates: end: 202410

REACTIONS (8)
  - Skin discolouration [Unknown]
  - Hair colour changes [Unknown]
  - Ageusia [Unknown]
  - Blister [Recovered/Resolved]
  - Blister [Unknown]
  - Asthenia [Recovering/Resolving]
  - Weight decreased [Unknown]
  - Grip strength decreased [Unknown]

NARRATIVE: CASE EVENT DATE: 20240719
